FAERS Safety Report 15891031 (Version 1)
Quarter: 2019Q1

REPORT INFORMATION
  Report Type: Spontaneous
  Country: US (occurrence: US)
  Receive Date: 20190130
  Receipt Date: 20190130
  Transmission Date: 20190417
  Serious: No
  Sender: FDA-Public Use
  Company Number: US-SA-2019SA022699

PATIENT
  Sex: Male

DRUGS (1)
  1. BISACODYL. [Suspect]
     Active Substance: BISACODYL

REACTIONS (1)
  - Drug ineffective [Unknown]
